FAERS Safety Report 26159499 (Version 1)
Quarter: 2025Q4

REPORT INFORMATION
  Report Type: Spontaneous
  Country: US (occurrence: None)
  Receive Date: 20251216
  Receipt Date: 20251216
  Transmission Date: 20260118
  Serious: No
  Sender: UCB
  Company Number: US-UCBSA-2025060364

PATIENT
  Age: 30 Year

DRUGS (3)
  1. BIMZELX [Suspect]
     Active Substance: BIMEKIZUMAB-BKZX
     Indication: Psoriasis
     Dosage: 320 MILLIGRAM, EV 2 WEEKS(QOW), FOR 16 WEEKS (WEEKS 0, 2, 4, 6, 8, 10, 12, 14, AND 16) THEN 2 PENS EVERY 4 WEEKS THEREAFTE
  2. BIMZELX [Suspect]
     Active Substance: BIMEKIZUMAB-BKZX
     Indication: Hidradenitis
  3. MIRENA [Concomitant]
     Active Substance: LEVONORGESTREL
     Indication: Contraception
     Dosage: UNK

REACTIONS (3)
  - Psoriasis [Unknown]
  - Hidradenitis [Unknown]
  - Condition aggravated [Unknown]
